FAERS Safety Report 11748462 (Version 1)
Quarter: 2015Q4

REPORT INFORMATION
  Report Type: Spontaneous
  Country: US (occurrence: US)
  Receive Date: 20151117
  Receipt Date: 20151117
  Transmission Date: 20160304
  Serious: Yes (Life-Threatening, Hospitalization, Other)
  Sender: FDA-Public Use
  Company Number: US-ABBVIE-15P-163-1499835-00

PATIENT
  Sex: Male

DRUGS (1)
  1. ANDROGEL [Suspect]
     Active Substance: TESTOSTERONE
     Indication: HYPOGONADISM
     Route: 061
     Dates: start: 20090420, end: 20101226

REACTIONS (8)
  - Cerebrovascular disorder [Unknown]
  - Injury [Unknown]
  - Economic problem [Unknown]
  - Embolism [Unknown]
  - Cardiovascular disorder [Unknown]
  - Pulmonary embolism [Unknown]
  - Emotional distress [Unknown]
  - Impaired work ability [Unknown]

NARRATIVE: CASE EVENT DATE: 20101226
